FAERS Safety Report 7918700-5 (Version None)
Quarter: 2011Q4

REPORT INFORMATION
  Report Type: 
  Country: None (occurrence: None)
  Receive Date: 20111109
  Receipt Date: 20111028
  Transmission Date: 20120403
  Serious: Yes (Hospitalization, Disabling)
  Sender: FDA-Public Use
  Company Number: 1094471

PATIENT
  Sex: Female

DRUGS (2)
  1. BUPIVACAINE HYDROCHLORIDE [Suspect]
     Indication: ANAESTHESIA PROCEDURE
     Dosage: CONTINUOUSLY, VIA A PAIN PUMP
     Route: 050
  2. LIDOCAINE HCL [Suspect]
     Indication: ANAESTHESIA PROCEDURE
     Dosage: , CONTINUOUSLY, VIA A PAIN PUMP
     Route: 050

REACTIONS (7)
  - MUSCULOSKELETAL DISORDER [None]
  - CHONDROLYSIS [None]
  - MUSCULOSKELETAL PAIN [None]
  - EMOTIONAL DISTRESS [None]
  - ANXIETY [None]
  - MUSCULOSKELETAL DISCOMFORT [None]
  - UNEVALUABLE EVENT [None]
